FAERS Safety Report 19012451 (Version 1)
Quarter: 2021Q1

REPORT INFORMATION
  Report Type: Spontaneous
  Country: US (occurrence: US)
  Receive Date: 20210316
  Receipt Date: 20210316
  Transmission Date: 20210420
  Serious: Yes (Life-Threatening, Hospitalization, Disabling)
  Sender: FDA-Public Use
  Company Number: None

PATIENT
  Age: 19 Year
  Sex: Female
  Weight: 51.75 kg

DRUGS (12)
  1. DIAZEPAM. [Concomitant]
     Active Substance: DIAZEPAM
  2. PROZAC [Suspect]
     Active Substance: FLUOXETINE HYDROCHLORIDE
     Indication: ANXIETY
     Dosage: ?          QUANTITY:1 TABLET(S);?
     Route: 048
     Dates: start: 20200101, end: 20210215
  3. TIZANADINE [Concomitant]
     Active Substance: TIZANIDINE
  4. ZOLOFT [Suspect]
     Active Substance: SERTRALINE HYDROCHLORIDE
     Indication: DEPRESSION
     Dosage: ?          QUANTITY:1 TABLET(S);?
     Route: 048
     Dates: start: 20170101, end: 20200101
  5. ZOLOFT [Suspect]
     Active Substance: SERTRALINE HYDROCHLORIDE
     Indication: ANXIETY
     Dosage: ?          QUANTITY:1 TABLET(S);?
     Route: 048
     Dates: start: 20170101, end: 20200101
  6. ATIVAN [Concomitant]
     Active Substance: LORAZEPAM
  7. CLONAZEPAM. [Concomitant]
     Active Substance: CLONAZEPAM
  8. IVIG [Concomitant]
     Active Substance: HUMAN IMMUNOGLOBULIN G
  9. BACLOFEN. [Concomitant]
     Active Substance: BACLOFEN
  10. PROZAC [Suspect]
     Active Substance: FLUOXETINE HYDROCHLORIDE
     Indication: DEPRESSION
     Dosage: ?          QUANTITY:1 TABLET(S);?
     Route: 048
     Dates: start: 20200101, end: 20210215
  11. PREGABALIN. [Concomitant]
     Active Substance: PREGABALIN
  12. VALIUM [Concomitant]
     Active Substance: DIAZEPAM

REACTIONS (5)
  - Respiratory tract infection [None]
  - Muscle rigidity [None]
  - Muscle spasms [None]
  - Musculoskeletal stiffness [None]
  - Dystonia [None]

NARRATIVE: CASE EVENT DATE: 20200811
